FAERS Safety Report 12661503 (Version 2)
Quarter: 2016Q3

REPORT INFORMATION
  Report Type: Spontaneous
  Country: US (occurrence: US)
  Receive Date: 20160817
  Receipt Date: 20160913
  Transmission Date: 20161109
  Serious: No
  Sender: FDA-Public Use
  Company Number: US-PFIZER INC-2016364552

PATIENT
  Age: 58 Year
  Sex: Female

DRUGS (1)
  1. AROMASIN [Suspect]
     Active Substance: EXEMESTANE
     Indication: BREAST CANCER
     Dosage: UNK
     Route: 048
     Dates: start: 201112, end: 201606

REACTIONS (3)
  - Pain [Unknown]
  - Migraine [Unknown]
  - Condition aggravated [Unknown]
